FAERS Safety Report 21550302 (Version 1)
Quarter: 2022Q4

REPORT INFORMATION
  Report Type: Report from Study
  Country: US (occurrence: US)
  Receive Date: 20221103
  Receipt Date: 20221103
  Transmission Date: 20230113
  Serious: No
  Sender: FDA-Public Use
  Company Number: US-ABBVIE-21K-163-4194693-00

PATIENT
  Age: 50 Year
  Sex: Male

DRUGS (4)
  1. HUMIRA [Suspect]
     Active Substance: ADALIMUMAB
     Indication: Crohn^s disease
     Route: 058
  2. HUMIRA [Suspect]
     Active Substance: ADALIMUMAB
     Dosage: DAY 1, ONCE
     Route: 058
     Dates: start: 20210901, end: 20210901
  3. HUMIRA [Suspect]
     Active Substance: ADALIMUMAB
     Dosage: DAY 15
     Route: 058
     Dates: start: 20210916, end: 20210916
  4. HUMIRA [Suspect]
     Active Substance: ADALIMUMAB
     Route: 058
     Dates: start: 20210901

REACTIONS (20)
  - Fatigue [Recovered/Resolved]
  - Flatulence [Recovering/Resolving]
  - Asthenia [Recovered/Resolved]
  - Anxiety [Not Recovered/Not Resolved]
  - Gastrointestinal sounds abnormal [Recovered/Resolved]
  - Abdominal pain [Unknown]
  - Injection site irritation [Recovered/Resolved]
  - Injection site reaction [Recovered/Resolved]
  - Asthenia [Recovering/Resolving]
  - Loss of personal independence in daily activities [Unknown]
  - Haematochezia [Not Recovered/Not Resolved]
  - Gastrointestinal sounds abnormal [Not Recovered/Not Resolved]
  - Fatigue [Recovering/Resolving]
  - Constipation [Recovering/Resolving]
  - Diarrhoea [Unknown]
  - Abdominal distension [Unknown]
  - Injection site erythema [Unknown]
  - Injection site pruritus [Recovered/Resolved]
  - Injection site swelling [Recovered/Resolved]
  - Depressed mood [Not Recovered/Not Resolved]

NARRATIVE: CASE EVENT DATE: 20220601
